FAERS Safety Report 12789621 (Version 1)
Quarter: 2016Q3

REPORT INFORMATION
  Report Type: Spontaneous
  Country: US (occurrence: US)
  Receive Date: 20160928
  Receipt Date: 20160928
  Transmission Date: 20161109
  Serious: Yes (Disabling, Other)
  Sender: FDA-Public Use
  Company Number: US-ENDO PHARMACEUTICALS INC.-2016-005918

PATIENT
  Sex: Male

DRUGS (1)
  1. TESTOPEL [Suspect]
     Active Substance: TESTOSTERONE
     Indication: ANDROGEN REPLACEMENT THERAPY
     Route: 058
     Dates: start: 20090716, end: 201403

REACTIONS (6)
  - Cardiovascular disorder [Unknown]
  - Emotional distress [Unknown]
  - Fear [Unknown]
  - Physical disability [Unknown]
  - Acute myocardial infarction [Unknown]
  - Anhedonia [Unknown]

NARRATIVE: CASE EVENT DATE: 20130928
